FAERS Safety Report 9341641 (Version 1)
Quarter: 2013Q2

REPORT INFORMATION
  Report Type: Spontaneous
  Country: DK (occurrence: DK)
  Receive Date: 20130611
  Receipt Date: 20130611
  Transmission Date: 20140414
  Serious: Yes (Other)
  Sender: FDA-Public Use
  Company Number: DK-AMGEN-DNKSP2013040561

PATIENT
  Age: 63 Year
  Sex: 0

DRUGS (1)
  1. PROLIA [Suspect]
     Indication: OSTEOPOROSIS
     Dosage: 60 MG, UNK
     Dates: start: 2010

REACTIONS (1)
  - Osteonecrosis of jaw [Recovered/Resolved with Sequelae]
